FAERS Safety Report 24406790 (Version 3)
Quarter: 2025Q4

REPORT INFORMATION
  Report Type: Report from Study
  Country: US (occurrence: US)
  Receive Date: 20241007
  Receipt Date: 20251021
  Transmission Date: 20260118
  Serious: Yes (Other)
  Sender: KYOWA
  Company Number: US-KYOWAKIRIN-2024KK022575

PATIENT

DRUGS (17)
  1. BUROSUMAB [Suspect]
     Active Substance: BUROSUMAB
     Indication: Hereditary hypophosphataemic rickets
     Dosage: 70 MG, 1X/4 WEEKS (30 MG ALTERNATING WITH 40 MG)UNK
     Route: 058
     Dates: start: 20231020
  2. BUROSUMAB [Suspect]
     Active Substance: BUROSUMAB
     Dosage: 30 MG ALTERNATING WITH 40 MG, 1X/2 WEEKS
     Route: 058
  3. BUROSUMAB [Suspect]
     Active Substance: BUROSUMAB
     Dosage: 30 MG ALTERNATING WITH 40 MG, 1X/2 WEEKS
     Route: 058
  4. BUROSUMAB [Suspect]
     Active Substance: BUROSUMAB
     Dosage: 30 MG ALTERNATING WITH 40 MG, 1X/2 WEEKS
     Route: 058
     Dates: start: 20240830
  5. BUROSUMAB [Suspect]
     Active Substance: BUROSUMAB
     Dosage: 30 MG ALTERNATING WITH 40 MG, 1X/2 WEEKS
     Route: 058
     Dates: start: 20240926
  6. BUROSUMAB [Suspect]
     Active Substance: BUROSUMAB
     Dosage: 30 MG, 1X/2 WEEKS
     Route: 058
     Dates: start: 20250728
  7. BUROSUMAB [Suspect]
     Active Substance: BUROSUMAB
     Dosage: 30 MG, 1X/2 WEEKS
     Route: 058
  8. BUROSUMAB [Suspect]
     Active Substance: BUROSUMAB
     Dosage: 30 MG, 1X/2 WEEKS
     Route: 058
  9. BUROSUMAB [Suspect]
     Active Substance: BUROSUMAB
     Indication: Hereditary hypophosphataemic rickets
     Dosage: 70 MG, 1X/4 WEEKS (30 MG ALTERNATING WITH 40 MG)
     Route: 058
     Dates: start: 20231020
  10. BUROSUMAB [Suspect]
     Active Substance: BUROSUMAB
     Dosage: 30 MG ALTERNATING WITH 40 MG, 1X/2 WEEKS
     Route: 058
  11. BUROSUMAB [Suspect]
     Active Substance: BUROSUMAB
     Dosage: 30 MG ALTERNATING WITH 40 MG, 1X/2 WEEKS
     Route: 058
     Dates: start: 20240830
  12. BUROSUMAB [Suspect]
     Active Substance: BUROSUMAB
     Dosage: 30 MG ALTERNATING WITH 40 MG, 1X/2 WEEKS
     Route: 058
     Dates: start: 20240830
  13. BUROSUMAB [Suspect]
     Active Substance: BUROSUMAB
     Dosage: 30 MG, 1X/2 WEEKS
     Route: 058
     Dates: start: 20250728
  14. BUROSUMAB [Suspect]
     Active Substance: BUROSUMAB
     Dosage: 30 MG, 1X/2 WEEKS
     Route: 058
  15. BUROSUMAB [Suspect]
     Active Substance: BUROSUMAB
     Dosage: 30 MG, 1X/2 WEEKS
     Route: 058
  16. BUROSUMAB [Suspect]
     Active Substance: BUROSUMAB
     Indication: Hereditary hypophosphataemic rickets
     Dosage: UNK, 1X/4 WEEKS
     Route: 065
     Dates: start: 20231017, end: 202510
  17. XYZAL [Concomitant]
     Active Substance: LEVOCETIRIZINE DIHYDROCHLORIDE
     Indication: Product used for unknown indication
     Dosage: UNK
     Route: 065

REACTIONS (2)
  - Exposure during pregnancy [Unknown]
  - Product prescribing error [Unknown]
